FAERS Safety Report 11949028 (Version 1)
Quarter: 2016Q1

REPORT INFORMATION
  Report Type: Other
  Country: GB (occurrence: GB)
  Receive Date: 20160125
  Receipt Date: 20160125
  Transmission Date: 20160526
  Serious: Yes (Hospitalization)
  Sender: FDA-Public Use
  Company Number: GB-MYLANLABS-2016M1002375

PATIENT

DRUGS (19)
  1. ALENDRONATE [Suspect]
     Active Substance: ALENDRONATE SODIUM
     Dosage: 70 MG, QW (MONDAY)
  2. CARBOCISTEINE [Concomitant]
     Active Substance: CARBOCYSTEINE
     Dosage: 750 MG, TID
  3. ADCAL D3 [Concomitant]
     Active Substance: CALCIUM CARBONATE\CHOLECALCIFEROL
     Dosage: 1 DF, BID
  4. ATORVASTATIN [Concomitant]
     Active Substance: ATORVASTATIN
     Dosage: 40 MG, QD (AT NIGHT)
  5. UNIPHYLLIN [Concomitant]
     Active Substance: THEOPHYLLINE ANHYDROUS
     Dosage: 400 MG, BID
  6. FERROUS FUMARATE [Concomitant]
     Active Substance: FERROUS FUMARATE
     Dosage: 210 MG, TID
  7. RELVAR ELLIPTA [Concomitant]
     Active Substance: FLUTICASONE FUROATE\VILANTEROL TRIFENATATE
     Dosage: 1 DF, QD (92/22MICROGRAMS)
  8. TAMSULOSIN [Concomitant]
     Active Substance: TAMSULOSIN
     Dosage: 400 ?G, QD
  9. IMIDAPRIL [Concomitant]
     Active Substance: IMIDAPRIL
     Dosage: 10 MG, QD
  10. THIAMINE. [Concomitant]
     Active Substance: THIAMINE
     Dosage: 100 MG, TID
  11. FOLIC ACID. [Concomitant]
     Active Substance: FOLIC ACID
     Dosage: 5 MG, QD
  12. LANSOPRAZOLE. [Concomitant]
     Active Substance: LANSOPRAZOLE
     Dosage: 30 MG, QD
  13. PROCHLORPERAZINE. [Concomitant]
     Active Substance: PROCHLORPERAZINE
     Dosage: 3 MG, UNK (2 TIMES A DAY AS NECESSARY)
     Route: 002
  14. SALBUTAMOL [Concomitant]
     Active Substance: ALBUTEROL
     Dosage: 100 ?G, UNK (2 AS REQUIRED)
  15. INCRUSE ELLIPTA [Concomitant]
     Active Substance: UMECLIDINIUM BROMIDE
     Dosage: 55 ?G, QD
     Route: 055
  16. CODEINE [Concomitant]
     Active Substance: CODEINE
     Dosage: 30 MG, UNK (4 TIMES A DAY AS NECESSARY)
  17. LACTULOSE. [Concomitant]
     Active Substance: LACTULOSE
     Dosage: 15 UNK, BID
  18. ACETYLSALICYLIC ACID [Suspect]
     Active Substance: ASPIRIN
     Dosage: 75 MG, QD
  19. PARACETAMOL [Concomitant]
     Active Substance: ACETAMINOPHEN
     Dosage: 1 G, UNK (4 TIMES A DAY AS NECESSARY)

REACTIONS (1)
  - Upper gastrointestinal haemorrhage [Recovered/Resolved]
